FAERS Safety Report 10275819 (Version 1)
Quarter: 2014Q3

REPORT INFORMATION
  Report Type: Spontaneous
  Country: CH (occurrence: CH)
  Receive Date: 20140703
  Receipt Date: 20140703
  Transmission Date: 20150326
  Serious: Yes (Other)
  Sender: FDA-Public Use
  Company Number: PHHY2014CH080720

PATIENT
  Age: 54 Year
  Sex: Female

DRUGS (1)
  1. CLOZAPINE. [Suspect]
     Active Substance: CLOZAPINE
     Dosage: 300 MG PER DAY

REACTIONS (7)
  - Leukocytosis [Unknown]
  - Body temperature increased [Unknown]
  - Infection [Unknown]
  - Confusional state [Unknown]
  - Antipsychotic drug level above therapeutic [Unknown]
  - C-reactive protein increased [Unknown]
  - Pericarditis [Unknown]
